FAERS Safety Report 12788527 (Version 1)
Quarter: 2016Q3

REPORT INFORMATION
  Report Type: Spontaneous
  Country: IN (occurrence: IN)
  Receive Date: 20160928
  Receipt Date: 20160928
  Transmission Date: 20161109
  Serious: Yes (Other)
  Sender: FDA-Public Use
  Company Number: PHHY2016IN131094

PATIENT
  Sex: Female

DRUGS (1)
  1. SCAPHO [Suspect]
     Active Substance: SECUKINUMAB
     Indication: PSORIASIS
     Dosage: 300 MG, WEEKLY ONCE FOR WEEKS , AFTER 4 WEEKS ONCE MONTHLY
     Route: 058
     Dates: start: 20160315, end: 20160712

REACTIONS (5)
  - Systemic lupus erythematosus [Unknown]
  - Rheumatic disorder [Unknown]
  - Psoriasis [Unknown]
  - Neutralising antibodies positive [Unknown]
  - Fatigue [Unknown]

NARRATIVE: CASE EVENT DATE: 20160315
